FAERS Safety Report 17324671 (Version 2)
Quarter: 2020Q1

REPORT INFORMATION
  Report Type: Spontaneous
  Country: ES (occurrence: ES)
  Receive Date: 20200127
  Receipt Date: 20200213
  Transmission Date: 20200409
  Serious: Yes (Other)
  Sender: FDA-Public Use
  Company Number: ES-ROCHE-2528799

PATIENT
  Sex: Female

DRUGS (9)
  1. XELODA [Suspect]
     Active Substance: CAPECITABINE
     Indication: BREAST CANCER
     Route: 048
     Dates: start: 201408, end: 201504
  2. ZOLPIDEM [Concomitant]
     Active Substance: ZOLPIDEM TARTRATE
  3. HERCEPTIN [Suspect]
     Active Substance: TRASTUZUMAB
     Route: 065
     Dates: start: 20131017, end: 20140228
  4. ROSUVASTATIN. [Concomitant]
     Active Substance: ROSUVASTATIN
  5. CANDESARTAN. [Concomitant]
     Active Substance: CANDESARTAN
  6. HERCEPTIN [Suspect]
     Active Substance: TRASTUZUMAB
     Indication: BREAST CANCER
     Route: 065
     Dates: start: 201205
  7. OMEPRAZOLE. [Concomitant]
     Active Substance: OMEPRAZOLE
  8. CALCIUM [Concomitant]
     Active Substance: CALCIUM
  9. DAFLON [DIOSMIN;HESPERIDIN] [Concomitant]
     Active Substance: DIOSMIN\HESPERIDIN

REACTIONS (5)
  - Asthenia [Unknown]
  - Neurotoxicity [Unknown]
  - Off label use [Unknown]
  - Intentional product use issue [Unknown]
  - Palmar-plantar erythrodysaesthesia syndrome [Unknown]
